FAERS Safety Report 22534565 (Version 1)
Quarter: 2023Q2

REPORT INFORMATION
  Report Type: Spontaneous
  Country: ES (occurrence: ES)
  Receive Date: 20230608
  Receipt Date: 20230608
  Transmission Date: 20230722
  Serious: Yes (Other)
  Sender: FDA-Public Use
  Company Number: None

PATIENT
  Age: 75 Year
  Sex: Female
  Weight: 86 kg

DRUGS (4)
  1. GABAPENTIN [Suspect]
     Active Substance: GABAPENTIN
     Indication: Sciatica
     Dosage: 100.0 MG C/24 H NOC, EFG, 90 CAPSULES
     Route: 065
     Dates: start: 20230510
  2. OMEPRAZOLE [Concomitant]
     Active Substance: OMEPRAZOLE
     Indication: Osteoarthritis
     Dosage: 20.0 MG A-DE, EFG, 56 CAPSULES
     Route: 065
     Dates: start: 20131026
  3. PREDNISONE [Concomitant]
     Active Substance: PREDNISONE
     Indication: Arthralgia
     Dosage: 2.5 MG DE, EFG, 30 TABLETS
     Route: 065
     Dates: start: 20230225
  4. CANDESARTAN CILEXETIL [Concomitant]
     Active Substance: CANDESARTAN CILEXETIL
     Indication: Hypertension
     Dosage: 8.0 MG DE, 28 TABLETS
     Route: 065
     Dates: start: 20201217

REACTIONS (1)
  - Palatal oedema [Recovered/Resolved]

NARRATIVE: CASE EVENT DATE: 20230513
